FAERS Safety Report 6120601-2 (Version None)
Quarter: 2009Q1

REPORT INFORMATION
  Report Type: 
  Country: None (occurrence: None)
  Receive Date: 20090313
  Receipt Date: 20090311
  Transmission Date: 20090719
  Serious: Yes (Life-Threatening, Hospitalization)
  Sender: FDA-Public Use
  Company Number: GXKR2009DE02993

PATIENT
  Age: 64 Year
  Sex: Male
  Weight: 82 kg

DRUGS (2)
  1. METOHEXAL (NGX) (METOPROLOL) UNKNOWN, 95MG [Suspect]
     Indication: HYPERTENSION
     Dosage: 95 MG, BID, ORAL
     Route: 048
     Dates: start: 20081218, end: 20090218
  2. LIDOCAINE [Suspect]
     Indication: PAIN
     Dosage: TRANSDERMAL
     Route: 062
     Dates: start: 20090131, end: 20090218

REACTIONS (4)
  - HYPOTENSION [None]
  - HYPOTHERMIA [None]
  - NODAL RHYTHM [None]
  - SINUS BRADYCARDIA [None]
